FAERS Safety Report 7578261-X (Version None)
Quarter: 2011Q2

REPORT INFORMATION
  Report Type: 
  Country: None (occurrence: None)
  Receive Date: 20110628
  Receipt Date: 20110616
  Transmission Date: 20111010
  Serious: Yes (Death)
  Sender: FDA-Public Use
  Company Number: CA-JNJFOC-20110302243

PATIENT
  Sex: Male
  Weight: 107 kg

DRUGS (9)
  1. NASACORT [Concomitant]
     Dosage: 2 SPRAYS PRN
     Route: 045
  2. REACTINE [Concomitant]
     Route: 065
  3. PANTOPRAZOLE [Concomitant]
     Route: 065
  4. REMICADE [Suspect]
     Indication: CROHN'S DISEASE
     Dosage: 23 INFUSIONS
     Route: 042
  5. CODEINE [Concomitant]
     Dosage: PRN
     Route: 065
  6. PAROXETINE HCL [Concomitant]
     Route: 065
  7. PLAVIX [Concomitant]
     Route: 065
  8. OXYCONTIN [Concomitant]
     Route: 065
  9. POTASSIUM [Concomitant]
     Route: 065

REACTIONS (1)
  - DEATH [None]
